FAERS Safety Report 18982271 (Version 1)
Quarter: 2021Q1

REPORT INFORMATION
  Report Type: Spontaneous
  Country: CH (occurrence: CH)
  Receive Date: 20210308
  Receipt Date: 20210308
  Transmission Date: 20210420
  Serious: Yes (Hospitalization, Other)
  Sender: FDA-Public Use
  Company Number: CH-009507513-2101CHE005420

PATIENT
  Sex: Female
  Weight: 40 kg

DRUGS (5)
  1. OMEPRAZOLE. [Concomitant]
     Active Substance: OMEPRAZOLE
     Indication: DUODENOGASTRIC REFLUX
     Dosage: 20 MILLIGRAM, QD
     Route: 048
     Dates: start: 202010
  2. BACTRIM [Concomitant]
     Active Substance: SULFAMETHOXAZOLE\TRIMETHOPRIM
     Indication: URINARY TRACT INFECTION
     Dosage: 2X/D, TOTAL DAILY DOSE: 10D
     Route: 048
     Dates: start: 20201113
  3. CREON [Concomitant]
     Active Substance: PANCRELIPASE AMYLASE\PANCRELIPASE LIPASE\PANCRELIPASE PROTEASE
     Indication: PRODUCT SUBSTITUTION
     Dosage: 50000, TID, TOTAL DAILY DOSE: 150000
     Route: 048
  4. KEYTRUDA [Suspect]
     Active Substance: PEMBROLIZUMAB
     Indication: HEREDITARY NON-POLYPOSIS COLORECTAL CANCER SYNDROME
     Dosage: 200 MILLIGRAM, Q3W
     Route: 042
     Dates: start: 20200210, end: 20201123
  5. SAROTEN [Concomitant]
     Active Substance: AMITRIPTYLINE
     Indication: DEPRESSION
     Dosage: 50 MILLIGRAM, QD
     Route: 048
     Dates: start: 202010

REACTIONS (4)
  - Squamous cell carcinoma of skin [Unknown]
  - Off label use [Unknown]
  - Organising pneumonia [Unknown]
  - Dyspnoea [Recovered/Resolved]

NARRATIVE: CASE EVENT DATE: 2020
